FAERS Safety Report 5794607-7 (Version None)
Quarter: 2008Q2

REPORT INFORMATION
  Report Type: 
  Country: None (occurrence: None)
  Receive Date: 20080627
  Receipt Date: 20080627
  Transmission Date: 20081010
  Serious: Yes (Hospitalization)
  Sender: FDA-Public Use
  Company Number: None

PATIENT
  Sex: Female
  Weight: 115.6672 kg

DRUGS (13)
  1. BACTRIM DS [Suspect]
     Dosage: 1 TABLET PO BID  STARTED 2 WEEKS PRIOR TO ADMISSION
     Route: 048
  2. RELAFEN [Concomitant]
  3. AVAPRO [Concomitant]
  4. TOPROL-XL [Concomitant]
  5. LASIX [Concomitant]
  6. POTASSIUM CHLORIDE [Concomitant]
  7. PAXIL [Concomitant]
  8. BETOPTIC [Concomitant]
  9. SINGULAIR [Concomitant]
  10. ASMACORT [Concomitant]
  11. PULMICORT-100 [Concomitant]
  12. BROVANA INHALATION SOLUTION [Concomitant]
  13. PREDNISOLONE [Concomitant]

REACTIONS (6)
  - CHILLS [None]
  - DYSPNOEA [None]
  - NAUSEA [None]
  - PYREXIA [None]
  - RASH MACULO-PAPULAR [None]
  - VOMITING [None]
